FAERS Safety Report 7535464-8 (Version None)
Quarter: 2011Q2

REPORT INFORMATION
  Report Type: 
  Country: None (occurrence: None)
  Receive Date: 20110609
  Receipt Date: 20080630
  Transmission Date: 20111010
  Serious: Yes (Hospitalization, Other)
  Sender: FDA-Public Use
  Company Number: PHHY2007JP00817

PATIENT
  Sex: Male
  Weight: 69 kg

DRUGS (1)
  1. DIOVAN [Suspect]
     Indication: HYPERTENSION
     Dosage: 80 MG, QD
     Route: 048
     Dates: start: 20070206

REACTIONS (5)
  - DUODENAL ULCER [None]
  - GAIT DISTURBANCE [None]
  - ANGINA PECTORIS [None]
  - ANAEMIA [None]
  - ANGINA UNSTABLE [None]
